FAERS Safety Report 5214932-8 (Version None)
Quarter: 2007Q1

REPORT INFORMATION
  Report Type: 
  Country: None (occurrence: None)
  Receive Date: 20070122
  Receipt Date: 20070112
  Transmission Date: 20070707
  Serious: Yes (Other)
  Sender: FDA-Public Use
  Company Number: KR-PFIZER INC-2007004704

PATIENT

DRUGS (1)
  1. DETRUSITOL [Suspect]

REACTIONS (1)
  - BLADDER CANCER [None]
